FAERS Safety Report 12820740 (Version 1)
Quarter: 2016Q4

REPORT INFORMATION
  Report Type: Report from Study
  Country: FR (occurrence: FR)
  Receive Date: 20161006
  Receipt Date: 20161006
  Transmission Date: 20170207
  Serious: Yes (Other)
  Sender: FDA-Public Use
  Company Number: FR-ASTELLAS-2016US039043

PATIENT
  Sex: Female

DRUGS (17)
  1. IRBESARTAN. [Concomitant]
     Active Substance: IRBESARTAN
     Indication: HYPERTENSION
     Route: 065
     Dates: start: 201511, end: 201605
  2. AMLODIPINE [Concomitant]
     Active Substance: AMLODIPINE BESYLATE
     Indication: HYPERTENSION
     Route: 065
     Dates: start: 201510, end: 201511
  3. FUROSEMIDE. [Concomitant]
     Active Substance: FUROSEMIDE
     Route: 065
     Dates: start: 201605, end: 201607
  4. BISOPROLOL [Concomitant]
     Active Substance: BISOPROLOL
     Indication: HYPERTENSION
     Route: 065
     Dates: start: 201511, end: 201512
  5. SOTALOL. [Concomitant]
     Active Substance: SOTALOL
     Indication: HYPERTENSION
     Route: 065
     Dates: start: 201512
  6. REPAGLINIDE. [Concomitant]
     Active Substance: REPAGLINIDE
     Route: 065
     Dates: start: 201603, end: 201607
  7. TACROLIMUS. [Suspect]
     Active Substance: TACROLIMUS
     Indication: RENAL TRANSPLANT
     Route: 065
     Dates: start: 20151104
  8. ATORVASTATINE                      /01326101/ [Concomitant]
     Active Substance: ATORVASTATIN
     Indication: DYSLIPIDAEMIA
     Route: 065
     Dates: start: 201510
  9. FUROSEMIDE. [Concomitant]
     Active Substance: FUROSEMIDE
     Indication: HYPERTENSION
     Route: 065
     Dates: start: 201601, end: 201605
  10. VILDAGLIPTIN [Concomitant]
     Active Substance: VILDAGLIPTIN
     Indication: DIABETES MELLITUS
     Route: 065
     Dates: start: 201511, end: 201606
  11. REPAGLINIDE. [Concomitant]
     Active Substance: REPAGLINIDE
     Indication: DIABETES MELLITUS
     Route: 065
     Dates: start: 201510, end: 201511
  12. INSULINE GLARGINE [Concomitant]
     Active Substance: INSULIN GLARGINE
     Indication: DIABETES MELLITUS
     Dosage: UNK IU, ONCE DAILY
     Route: 065
     Dates: start: 201607
  13. MYCOPHENOLATE MOFETIL. [Concomitant]
     Active Substance: MYCOPHENOLATE MOFETIL
     Route: 065
     Dates: start: 201512, end: 201608
  14. NOVORAPID [Concomitant]
     Active Substance: INSULIN ASPART
     Indication: DIABETES MELLITUS
     Dosage: UNK IU, ONCE DAILY
     Route: 065
     Dates: start: 201607, end: 201608
  15. MYCOPHENOLATE MOFETIL. [Concomitant]
     Active Substance: MYCOPHENOLATE MOFETIL
     Indication: IMMUNOSUPPRESSANT DRUG THERAPY
     Route: 065
     Dates: start: 201510, end: 201512
  16. MYCOPHENOLATE MOFETIL. [Concomitant]
     Active Substance: MYCOPHENOLATE MOFETIL
     Route: 065
     Dates: start: 201608
  17. FUROSEMIDE. [Concomitant]
     Active Substance: FUROSEMIDE
     Route: 065
     Dates: start: 201607

REACTIONS (1)
  - Histology abnormal [Unknown]
